FAERS Safety Report 7733054-5 (Version None)
Quarter: 2011Q3

REPORT INFORMATION
  Report Type: 
  Country: None (occurrence: None)
  Receive Date: 20110907
  Receipt Date: 20110901
  Transmission Date: 20111222
  Serious: No
  Sender: FDA-Public Use
  Company Number: US-PFIZER INC-2011187435

PATIENT
  Sex: Female

DRUGS (1)
  1. PROCARDIA [Suspect]
     Indication: HYPERTENSION
     Dosage: UNK

REACTIONS (1)
  - REACTION TO DRUG EXCIPIENTS [None]
